FAERS Safety Report 7906963-1 (Version None)
Quarter: 2011Q4

REPORT INFORMATION
  Report Type: 
  Country: None (occurrence: None)
  Receive Date: 20111110
  Receipt Date: 20111109
  Transmission Date: 20120403
  Serious: Yes (Hospitalization)
  Sender: FDA-Public Use
  Company Number: AT-BAYER-200940088GPV

PATIENT
  Age: 64 Year
  Sex: Male
  Weight: 69.2 kg

DRUGS (1)
  1. NEXAVAR [Suspect]
     Indication: HEPATIC NEOPLASM MALIGNANT
     Route: 048
     Dates: start: 20081001, end: 20081023

REACTIONS (2)
  - NAUSEA [None]
  - VOMITING [None]
